FAERS Safety Report 6180357-4 (Version None)
Quarter: 2009Q2

REPORT INFORMATION
  Report Type: 
  Country: None (occurrence: None)
  Receive Date: 20090506
  Receipt Date: 20090423
  Transmission Date: 20091009
  Serious: Yes (Hospitalization)
  Sender: FDA-Public Use
  Company Number: JP-PFIZER INC-2009188383

PATIENT

DRUGS (5)
  1. MIGLITOL [Suspect]
     Indication: TYPE 2 DIABETES MELLITUS
     Dosage: 150 MG, UNK
     Route: 048
     Dates: start: 20090201, end: 20090301
  2. METFORMIN HCL [Suspect]
     Indication: TYPE 2 DIABETES MELLITUS
     Dosage: 750 MG, UNK
     Route: 048
     Dates: start: 20090201, end: 20090301
  3. ACTOS [Suspect]
     Indication: TYPE 2 DIABETES MELLITUS
     Dosage: 30 MG, UNK
     Route: 048
     Dates: start: 20090201, end: 20090301
  4. INSULIN [Suspect]
  5. HARNAL [Concomitant]
     Route: 048

REACTIONS (1)
  - HYPOGLYCAEMIA [None]
